FAERS Safety Report 20565898 (Version 3)
Quarter: 2024Q3

REPORT INFORMATION
  Report Type: Spontaneous
  Country: US (occurrence: US)
  Receive Date: 20220308
  Receipt Date: 20240920
  Transmission Date: 20241017
  Serious: No
  Sender: NOVARTIS
  Company Number: US-NOVARTISTESTPH-NVSC2022US053800

PATIENT
  Age: 32 Year
  Sex: Female
  Weight: 108.6 kg

DRUGS (3)
  1. TRILEPTAL [Suspect]
     Active Substance: OXCARBAZEPINE
     Indication: Product used for unknown indication
     Dosage: 300 MG, (3.5 DAILY)
     Route: 048
  2. GEODON [Concomitant]
     Active Substance: ZIPRASIDONE HYDROCHLORIDE\ZIPRASIDONE MESYLATE
     Indication: Product used for unknown indication
     Dosage: 40 MG, TID
     Route: 048
     Dates: start: 2018
  3. LORAZEPAM [Concomitant]
     Active Substance: LORAZEPAM
     Indication: Product used for unknown indication
     Dosage: 5.5 MG, QID
     Route: 065

REACTIONS (4)
  - Abnormal behaviour [Unknown]
  - Product tampering [Unknown]
  - Weight increased [Unknown]
  - Drug ineffective [Unknown]

NARRATIVE: CASE EVENT DATE: 20210101
